FAERS Safety Report 16948281 (Version 1)
Quarter: 2019Q4

REPORT INFORMATION
  Report Type: Spontaneous
  Country: US (occurrence: US)
  Receive Date: 20191022
  Receipt Date: 20191022
  Transmission Date: 20200122
  Serious: No
  Sender: FDA-Public Use
  Company Number: US-ROCHE-2382372

PATIENT
  Sex: Female

DRUGS (10)
  1. FLONASE ALLERGY RELIEF [Concomitant]
     Active Substance: FLUTICASONE PROPIONATE
     Dosage: SUS 50MCG/AC
     Route: 065
  2. ESBRIET [Suspect]
     Active Substance: PIRFENIDONE
     Dosage: 1 WEEK
     Route: 048
  3. BIOTIN [Concomitant]
     Active Substance: BIOTIN
     Dosage: 10000 MCG
     Route: 065
  4. PREDNISONE. [Concomitant]
     Active Substance: PREDNISONE
     Route: 065
  5. ESBRIET [Suspect]
     Active Substance: PIRFENIDONE
     Dosage: 1 WEEK
     Route: 048
  6. TURMERIC [CURCUMA LONGA] [Concomitant]
     Route: 065
  7. ESBRIET [Suspect]
     Active Substance: PIRFENIDONE
     Indication: IDIOPATHIC PULMONARY FIBROSIS
     Dosage: 1 WEEK
     Route: 048
     Dates: start: 201905
  8. SIMVASTATIN. [Concomitant]
     Active Substance: SIMVASTATIN
     Route: 065
  9. LOSARTAN POTASSIUM. [Concomitant]
     Active Substance: LOSARTAN POTASSIUM
     Route: 065
  10. ALENDRONATE [Concomitant]
     Active Substance: ALENDRONATE SODIUM
     Route: 065

REACTIONS (1)
  - Nausea [Not Recovered/Not Resolved]
